FAERS Safety Report 5233446-2 (Version None)
Quarter: 2007Q1

REPORT INFORMATION
  Report Type: 
  Country: None (occurrence: None)
  Receive Date: 20070206
  Receipt Date: 20070122
  Transmission Date: 20070707
  Serious: Yes (Death, Hospitalization)
  Sender: FDA-Public Use
  Company Number: GXKR2007IT01134

PATIENT
  Age: 45 Year
  Sex: Female

DRUGS (26)
  1. DIAZEPAM [Suspect]
     Indication: AGITATION
     Dates: start: 20021009
  2. HALOPERIDOL (NGX) (HALOPERIDOL) UNKNOWN [Suspect]
     Indication: AGITATION
     Dates: start: 20021009
  3. ITRACONAZOLE [Suspect]
     Dosage: 100 MG, UNK
     Dates: start: 20021009
  4. FUROSEMIDE [Suspect]
     Dosage: UNK, UNK, INTRAVENOUS
     Route: 042
     Dates: start: 20021027
  5. OMEPRAZOLE [Suspect]
     Dosage: 20 MG, QD, UNK
     Dates: start: 20021103
  6. PANTOPRAZOLE (NGX) (PANTOPRAZOLE) UNKNOWN [Suspect]
     Dates: start: 20021009
  7. CORTISONE ACETATE [Suspect]
     Dosage: 25 MG, BID, UNK
     Dates: start: 20021103
  8. CANRENOIC ACID (CANRENOIC ACID) [Suspect]
     Dosage: UNK, UNK, INTRAVENOUS
     Route: 042
     Dates: start: 20021027
  9. FLUDROCORTISONE 9FLUDROCORTISONE) [Suspect]
     Dates: end: 20021024
  10. CALCIUM GLUCONATE [Concomitant]
  11. POTASSIUM CHLORIDE [Concomitant]
  12. AMOXICILLIN SODIUM W/CLAVULANATE POTASSIUM (AMOXICILLIN SODIUM, CLAVUL [Concomitant]
  13. LEVOFLOXACIN [Concomitant]
  14. RAMIFIED CHAIN AMINO ACIDS [Concomitant]
  15. PIPERACILLIN [Concomitant]
  16. HYDROCORTISONE HEMISUCCINATE [Concomitant]
  17. RANITIDINE [Concomitant]
  18. RIFAMYCIN (RIFAMYCIN) [Concomitant]
  19. GENTAMICIN [Concomitant]
  20. POVIDONE IODINE [Concomitant]
  21. BETAMETHASONE [Concomitant]
  22. CHLORPHENAMINE (CHLORPHENAMINE) [Concomitant]
  23. GLUCOSE (GLUCOSE), 5% [Concomitant]
  24. MGCACL [Concomitant]
  25. ALBUMIN (HUMAN) [Concomitant]
  26. INSULIN (INSULIN) [Concomitant]

REACTIONS (6)
  - BACTERIAL CULTURE POSITIVE [None]
  - ENTEROCOCCAL INFECTION [None]
  - PSEUDOMONAS INFECTION [None]
  - SEPTIC SHOCK [None]
  - STAPHYLOCOCCAL INFECTION [None]
  - TOXIC EPIDERMAL NECROLYSIS [None]
